FAERS Safety Report 17001049 (Version 1)
Quarter: 2019Q4

REPORT INFORMATION
  Report Type: Spontaneous
  Country: US (occurrence: US)
  Receive Date: 20191106
  Receipt Date: 20191106
  Transmission Date: 20200122
  Serious: Yes (Death, Hospitalization)
  Sender: FDA-Public Use
  Company Number: US-TEVA-2019-US-1132049

PATIENT
  Sex: Male
  Weight: 86 kg

DRUGS (21)
  1. LEVETIRACETAM. [Concomitant]
     Active Substance: LEVETIRACETAM
     Dosage: LOADING DOSE IN ICU
     Route: 065
  2. MIDAZOLAM [Suspect]
     Active Substance: MIDAZOLAM HYDROCHLORIDE
     Dosage: IN FLIGHT, THE PATIENT RECEIVED 5 MORE 2.5-MG DOSES
     Route: 042
  3. LORAZEPAM. [Concomitant]
     Active Substance: LORAZEPAM
     Indication: HAEMODYNAMIC INSTABILITY
     Dosage: NUMBER OF DOSAGES: 1
     Route: 042
  4. NOREPINEPHRINE. [Suspect]
     Active Substance: NOREPINEPHRINE
     Dosage: THE NOREPINEPHRINE DRIP WAS AGGRESSIVELY TITRATED
     Route: 050
  5. SALINE [Suspect]
     Active Substance: SODIUM CHLORIDE
     Indication: HAEMODYNAMIC INSTABILITY
     Dosage: NUMBER OF DOSAGES: 1
     Route: 050
  6. MIDAZOLAM [Suspect]
     Active Substance: MIDAZOLAM HYDROCHLORIDE
     Indication: HAEMODYNAMIC INSTABILITY
     Route: 042
  7. LEVETIRACETAM. [Concomitant]
     Active Substance: LEVETIRACETAM
     Dosage: IN THE ICU
     Route: 050
  8. SODIUM BICARBONATE. [Suspect]
     Active Substance: SODIUM BICARBONATE
     Indication: HAEMODYNAMIC INSTABILITY
     Dosage: BOLUSES OF SODIUM BICARBONATE
     Route: 050
  9. DOPAMINE [Suspect]
     Active Substance: DOPAMINE HYDROCHLORIDE
     Indication: HAEMODYNAMIC INSTABILITY
     Route: 065
  10. SALINE [Suspect]
     Active Substance: SODIUM CHLORIDE
     Dosage: BOLUSES OF HYPERTONIC SALINE WERE ADMINISTERED
     Route: 050
  11. SODIUM BICARBONATE. [Suspect]
     Active Substance: SODIUM BICARBONATE
     Dosage: ADDITIONAL BOLUSES
     Route: 050
  12. MIDAZOLAM [Suspect]
     Active Substance: MIDAZOLAM HYDROCHLORIDE
     Dosage: IN ICU
     Route: 050
  13. LEVETIRACETAM. [Concomitant]
     Active Substance: LEVETIRACETAM
     Indication: HAEMODYNAMIC INSTABILITY
     Dosage: IN FLIGHT
     Route: 050
  14. FAT EMULSION NOS [Concomitant]
     Active Substance: EGG PHOSPHOLIPIDS\SAFFLOWER OIL\SOYBEAN OIL
     Indication: HAEMODYNAMIC INSTABILITY
     Route: 041
  15. EPINEPHRINE. [Suspect]
     Active Substance: EPINEPHRINE
     Indication: HAEMODYNAMIC INSTABILITY
     Route: 065
  16. SODIUM BICARBONATE. [Suspect]
     Active Substance: SODIUM BICARBONATE
     Dosage: IN FLIGHT, THE PATIENT RECEIVED 5 MORE 50-MEQ AMPULES
     Route: 065
  17. LORAZEPAM. [Concomitant]
     Active Substance: LORAZEPAM
     Dosage: ANOTHER 1-MG INTRAVENOUS PUSH
     Route: 042
  18. PROPOFOL. [Concomitant]
     Active Substance: PROPOFOL
     Indication: HAEMODYNAMIC INSTABILITY
     Route: 065
  19. NORTRIPTYLINE [Suspect]
     Active Substance: NORTRIPTYLINE
     Indication: INTENTIONAL OVERDOSE
     Dosage: THE PATIENT REPORTEDLY OVERDOSED ON APPROXIMATELY 150 TABLETS OF 100 MG NORTRIPTYLINE
     Route: 048
  20. NOREPINEPHRINE. [Suspect]
     Active Substance: NOREPINEPHRINE
     Indication: HAEMODYNAMIC INSTABILITY
     Route: 050
  21. MIDAZOLAM [Suspect]
     Active Substance: MIDAZOLAM HYDROCHLORIDE
     Route: 050

REACTIONS (6)
  - Pulmonary oedema [Unknown]
  - Intentional overdose [Unknown]
  - Drug ineffective [Unknown]
  - Acute respiratory distress syndrome [Unknown]
  - Haemodynamic instability [Fatal]
  - Toxicity to various agents [Fatal]
